FAERS Safety Report 23561736 (Version 2)
Quarter: 2024Q2

REPORT INFORMATION
  Report Type: Spontaneous
  Country: FR (occurrence: FR)
  Receive Date: 20240225
  Receipt Date: 20240514
  Transmission Date: 20240716
  Serious: No
  Sender: FDA-Public Use
  Company Number: FR-JNJFOC-20240186338

PATIENT
  Sex: Male

DRUGS (1)
  1. SIMPONI [Suspect]
     Active Substance: GOLIMUMAB
     Indication: Product used for unknown indication
     Route: 058

REACTIONS (2)
  - Product dose omission issue [Unknown]
  - Device deployment issue [Unknown]
